FAERS Safety Report 8735525 (Version 2)
Quarter: 2012Q4

REPORT INFORMATION
  Report Type: 
  Country: GB (occurrence: GB)
  Receive Date: 20120822
  Receipt Date: 20121212
  Transmission Date: 20130627
  Serious: Yes (Life-Threatening, Hospitalization, Disabling, Other)
  Sender: FDA-Public Use
  Company Number: PHFR2012GB004577

PATIENT
  Age: 50 Year
  Sex: Female
  Weight: 76 kg

DRUGS (8)
  1. CLOZARIL [Suspect]
     Indication: SCHIZOPHRENIA
     Dosage: 500 mg, UNK
     Route: 048
     Dates: start: 20120427, end: 20120814
  2. CLOZARIL [Suspect]
     Dosage: UNK UKN, UNK
     Route: 048
  3. PROCYCLIDINE [Concomitant]
     Indication: EXTRAPYRAMIDAL DISORDER
     Dosage: 15 mg, daily
     Route: 048
     Dates: start: 201207
  4. LACTULOSE [Concomitant]
     Dosage: 30 ml, daily
     Route: 048
     Dates: start: 201205, end: 20120814
  5. BECLOMETASONE [Concomitant]
     Indication: ASTHMA
     Dosage: 400 mg, daily
     Dates: start: 201203
  6. BECLOMETASONE [Concomitant]
     Indication: CHRONIC OBSTRUCTIVE PULMONARY DISEASE
  7. NAPROXEN [Concomitant]
     Indication: OSTEOARTHRITIS
     Dosage: 1 g, daily
     Route: 048
     Dates: start: 201206, end: 20120814
  8. OMEPRAZOLE [Concomitant]
     Dosage: 20 mg, daily
     Route: 048
     Dates: start: 201206

REACTIONS (5)
  - Intestinal perforation [Recovered/Resolved]
  - Pneumonia [Recovered/Resolved]
  - Deep vein thrombosis [Recovered/Resolved]
  - Arterial occlusive disease [Recovered/Resolved]
  - Finger deformity [Recovered/Resolved]
